FAERS Safety Report 5846723-9 (Version None)
Quarter: 2008Q3

REPORT INFORMATION
  Report Type: 
  Country: None (occurrence: None)
  Receive Date: 20080815
  Receipt Date: 20080805
  Transmission Date: 20090109
  Serious: Yes (Hospitalization)
  Sender: FDA-Public Use
  Company Number: US-ABBOTT-08P-163-0469222-00

PATIENT
  Sex: Female
  Weight: 44.492 kg

DRUGS (4)
  1. HUMIRA [Suspect]
     Indication: RHEUMATOID ARTHRITIS
     Route: 050
     Dates: start: 20050101
  2. METHOTREXATE [Concomitant]
     Indication: RHEUMATOID ARTHRITIS
     Route: 050
     Dates: start: 20070101
  3. CALCIUM [Concomitant]
     Indication: BONE DENSITY DECREASED
     Route: 048
     Dates: start: 20050101
  4. FOLIC ACID [Concomitant]
     Indication: RHEUMATOID ARTHRITIS
     Route: 048
     Dates: start: 20050101

REACTIONS (3)
  - ABDOMINAL DISCOMFORT [None]
  - HYSTERECTOMY [None]
  - NAUSEA [None]
